FAERS Safety Report 6136562-6 (Version None)
Quarter: 2009Q1

REPORT INFORMATION
  Report Type: 
  Country: None (occurrence: None)
  Receive Date: 20090330
  Receipt Date: 20090318
  Transmission Date: 20090719
  Serious: Yes (Death, Life-Threatening, Other)
  Sender: FDA-Public Use
  Company Number: JP-PFIZER INC-2008089606

PATIENT

DRUGS (8)
  1. SUNITINIB MALATE [Suspect]
     Indication: RENAL CELL CARCINOMA
     Dosage: TDD 37.5MG
     Route: 048
     Dates: start: 20080918, end: 20081002
  2. INTERFERON [Concomitant]
     Route: 048
  3. ATELEC [Concomitant]
     Route: 048
  4. EXCEGRAN [Concomitant]
     Route: 048
  5. COLDRIN [Concomitant]
     Route: 048
  6. CODEINE PHOSPHATE [Concomitant]
     Route: 048
  7. DEPAS [Concomitant]
     Route: 048
  8. MAGNESIUM OXIDE [Concomitant]
     Route: 048
     Dates: end: 20081009

REACTIONS (13)
  - CARDIAC DISORDER [None]
  - DELIRIUM [None]
  - DISEASE PROGRESSION [None]
  - DISSEMINATED INTRAVASCULAR COAGULATION [None]
  - HAEMORRHAGE [None]
  - HYPOCALCAEMIA [None]
  - HYPONATRAEMIA [None]
  - HYPOTHYROIDISM [None]
  - PANCREATIC ENZYME ABNORMALITY [None]
  - PLEURAL EFFUSION [None]
  - RENAL CELL CARCINOMA [None]
  - STOMATITIS [None]
  - THROMBOCYTOPENIA [None]
